FAERS Safety Report 5991700-0 (Version None)
Quarter: 2008Q4

REPORT INFORMATION
  Report Type: 
  Country: None (occurrence: None)
  Receive Date: 20081202
  Receipt Date: 20071130
  Transmission Date: 20090506
  Serious: Yes (Other)
  Sender: FDA-Public Use
  Company Number: WAES 0708USA00154

PATIENT
  Age: 69 Year
  Sex: Female
  Weight: 70.3075 kg

DRUGS (1)
  1. FOSAMAX [Suspect]
     Indication: OSTEOPOROSIS
     Dosage: PO
     Route: 048
     Dates: start: 20040101, end: 20060101

REACTIONS (9)
  - BONE CANCER METASTATIC [None]
  - FACE INJURY [None]
  - FALL [None]
  - GINGIVAL ABSCESS [None]
  - HIATUS HERNIA [None]
  - MUSCULOSKELETAL PAIN [None]
  - ORAL INFECTION [None]
  - OSTEONECROSIS [None]
  - SINUSITIS [None]
